FAERS Safety Report 20642564 (Version 1)
Quarter: 2022Q1

REPORT INFORMATION
  Report Type: Spontaneous
  Country: US (occurrence: None)
  Receive Date: 20220325
  Receipt Date: 20220325
  Transmission Date: 20220423
  Serious: Yes (Hospitalization)
  Sender: FDA-Public Use
  Company Number: None

PATIENT
  Age: 68 Year
  Sex: Male

DRUGS (7)
  1. ESBRIET [Suspect]
     Active Substance: PIRFENIDONE
     Indication: Idiopathic pulmonary fibrosis
     Dosage: FREQUENCY : 3 TIMES A DAY;?
     Route: 048
     Dates: start: 20191218, end: 20220324
  2. DOXAZOSIN [Concomitant]
  3. LISINOPRIL [Concomitant]
     Active Substance: LISINOPRIL
  4. LORAT [Concomitant]
  5. NIFEDIPINE [Concomitant]
     Active Substance: NIFEDIPINE
  6. PRILOSEC [Concomitant]
     Active Substance: OMEPRAZOLE MAGNESIUM
  7. RITUXAN [Concomitant]
     Active Substance: RITUXIMAB

REACTIONS (1)
  - Lung transplant [None]

NARRATIVE: CASE EVENT DATE: 20220324
